FAERS Safety Report 10625992 (Version 1)
Quarter: 2014Q4

REPORT INFORMATION
  Report Type: Spontaneous
  Country: US (occurrence: US)
  Receive Date: 20141204
  Receipt Date: 20141204
  Transmission Date: 20150529
  Serious: Yes (Hospitalization, Other)
  Sender: FDA-Public Use
  Company Number: PHHY2014US155089

PATIENT
  Age: 52 Year
  Sex: Female

DRUGS (4)
  1. MYCOPHENOLIC ACID. [Suspect]
     Active Substance: MYCOPHENOLIC ACID
     Indication: IMMUNOSUPPRESSION
     Route: 065
  2. PREDNISONE. [Suspect]
     Active Substance: PREDNISONE
     Indication: IMMUNOSUPPRESSION
     Dosage: UNK
     Route: 065
  3. ANTITHYMOCYTE IMMUNOGLOBULIN [Suspect]
     Active Substance: THYMOCYTE IMMUNE GLOBULIN NOS
     Indication: IMMUNOSUPPRESSION
     Route: 065
  4. TACROLIMUS. [Suspect]
     Active Substance: TACROLIMUS
     Indication: IMMUNOSUPPRESSION
     Dosage: UNK
     Route: 065

REACTIONS (12)
  - Rales [Recovered/Resolved]
  - Pyrexia [Recovered/Resolved]
  - Headache [Recovered/Resolved]
  - Sputum abnormal [Recovered/Resolved]
  - Pneumonia [Recovered/Resolved]
  - Productive cough [Recovered/Resolved]
  - Toxicity to various agents [Unknown]
  - Renal tubular necrosis [Unknown]
  - Rhodococcus infection [Recovered/Resolved]
  - Asthenia [Recovered/Resolved]
  - Chills [Recovered/Resolved]
  - Pulmonary mass [Recovered/Resolved]
